FAERS Safety Report 8921578 (Version 4)
Quarter: 2013Q2

REPORT INFORMATION
  Report Type: Report from Study
  Country: CA (occurrence: CA)
  Receive Date: 20121121
  Receipt Date: 20130401
  Transmission Date: 20140414
  Serious: Yes (Hospitalization)
  Sender: FDA-Public Use
  Company Number: CA-ROCHE-1157889

PATIENT
  Age: 59 Year
  Sex: Male
  Weight: 80.36 kg

DRUGS (9)
  1. BEVACIZUMAB [Suspect]
     Indication: GLIOBLASTOMA
     Route: 042
     Dates: start: 20121024, end: 20121107
  2. DEXILANT [Concomitant]
     Route: 065
  3. SULCRATE [Concomitant]
     Route: 065
  4. DEXAMETHASONE [Concomitant]
     Route: 065
  5. CIPRALEX [Concomitant]
     Route: 065
  6. DILANTIN [Concomitant]
     Route: 065
  7. ATORVASTATIN [Concomitant]
     Route: 065
  8. LISINOPRIL [Concomitant]
     Route: 065
  9. FINASTERIDE [Concomitant]
     Route: 065

REACTIONS (4)
  - Cerebrovascular accident [Unknown]
  - Fall [Unknown]
  - Abasia [Not Recovered/Not Resolved]
  - Hip fracture [Not Recovered/Not Resolved]
